FAERS Safety Report 23908112 (Version 1)
Quarter: 2024Q2

REPORT INFORMATION
  Report Type: Spontaneous
  Country: US (occurrence: None)
  Receive Date: 20240524
  Receipt Date: 20240524
  Transmission Date: 20240716
  Serious: Yes (Other)
  Sender: FDA-Public Use
  Company Number: None

PATIENT
  Age: 35 Year
  Sex: Female
  Weight: 67 kg

DRUGS (2)
  1. TEPEZZA [Suspect]
     Active Substance: TEPROTUMUMAB-TRBW
     Indication: Exophthalmos
     Dosage: 1400MG EVERY 3 WEEKS INTRAVENOUS BOLUS
     Route: 040
     Dates: start: 20240503, end: 20240520
  2. TEPEZZA [Suspect]
     Active Substance: TEPROTUMUMAB-TRBW
     Indication: Hyperthyroidism

REACTIONS (6)
  - Nausea [None]
  - Diarrhoea [None]
  - Decreased appetite [None]
  - Weight decreased [None]
  - Ulcer [None]
  - Abdominal infection [None]

NARRATIVE: CASE EVENT DATE: 20240520
